FAERS Safety Report 4348235-0 (Version None)
Quarter: 2004Q1

REPORT INFORMATION
  Report Type: 
  Country: None (occurrence: None)
  Receive Date: 20040325
  Receipt Date: 20031202
  Transmission Date: 20041129
  Serious: No
  Sender: FDA-Public Use
  Company Number: USA031050903

PATIENT
  Age: 73 Year
  Sex: Female

DRUGS (10)
  1. FORTEO [Suspect]
     Indication: OSTEOPOROSIS
     Dosage: 20 UG/DAY
     Dates: start: 20031010
  2. EVISTA [Suspect]
     Indication: OSTEOPOROSIS
     Dates: end: 20020101
  3. METOPROLOL [Concomitant]
  4. ASPIRIN [Concomitant]
  5. VITAMIN E [Concomitant]
  6. CALCIUM WITH VITAMIN D [Concomitant]
  7. SYNTHROID [Concomitant]
  8. LECITHIN [Concomitant]
  9. MULTI-VITAMIN [Concomitant]
  10. ASPIRIN [Concomitant]

REACTIONS (15)
  - ARTHROPATHY [None]
  - BONE PAIN [None]
  - BURNING SENSATION [None]
  - DIFFICULTY IN WALKING [None]
  - FEELING ABNORMAL [None]
  - FEELING HOT [None]
  - GAIT DISTURBANCE [None]
  - HYPOAESTHESIA [None]
  - INJECTION SITE HAEMORRHAGE [None]
  - MOBILITY DECREASED [None]
  - OEDEMA PERIPHERAL [None]
  - PAIN [None]
  - PAIN IN EXTREMITY [None]
  - RASH PAPULAR [None]
  - SENSORY DISTURBANCE [None]
